FAERS Safety Report 22246555 (Version 1)
Quarter: 2023Q2

REPORT INFORMATION
  Report Type: Report from Study
  Country: US (occurrence: US)
  Receive Date: 20230424
  Receipt Date: 20230424
  Transmission Date: 20230722
  Serious: No
  Sender: FDA-Public Use
  Company Number: US-INCYTE CORPORATION-2023IN002730

PATIENT

DRUGS (2)
  1. JAKAFI [Suspect]
     Active Substance: RUXOLITINIB
     Indication: Polycythaemia vera
     Dosage: 15 MILLIGRAM, BID
     Route: 048
  2. JAKAFI [Suspect]
     Active Substance: RUXOLITINIB
     Dosage: UNK, 15MG IN THE MORNING AND A 10MG AT NIGHT
     Route: 048

REACTIONS (9)
  - Infection [Not Recovered/Not Resolved]
  - Oral herpes zoster [Unknown]
  - Nail disorder [Not Recovered/Not Resolved]
  - Impaired healing [Unknown]
  - Peripheral venous disease [Unknown]
  - Skin ulcer [Unknown]
  - Oedema [Unknown]
  - Infected skin ulcer [Unknown]
  - Urinary tract infection [Unknown]
